FAERS Safety Report 6684076-7 (Version None)
Quarter: 2010Q2

REPORT INFORMATION
  Report Type: 
  Country: None (occurrence: None)
  Receive Date: 20100416
  Receipt Date: 20100405
  Transmission Date: 20101027
  Serious: Yes (Other)
  Sender: FDA-Public Use
  Company Number: US-MYLANLABS-2010S1004062

PATIENT
  Age: 16 Year
  Sex: Female
  Weight: 56.7 kg

DRUGS (3)
  1. AMNESTEEM [Suspect]
     Indication: ACNE CYSTIC
     Route: 048
     Dates: start: 20091027, end: 20100223
  2. ALESSE [Concomitant]
     Dates: start: 20091001
  3. ZOLOFT [Concomitant]
     Indication: DEPRESSION

REACTIONS (3)
  - ERYTHEMA [None]
  - PAIN IN EXTREMITY [None]
  - RASH [None]
